FAERS Safety Report 17888886 (Version 3)
Quarter: 2020Q3

REPORT INFORMATION
  Report Type: Report from Study
  Country: US (occurrence: US)
  Receive Date: 20200612
  Receipt Date: 20200710
  Transmission Date: 20201103
  Serious: No
  Sender: FDA-Public Use
  Company Number: US-SA-2020SA146286

PATIENT

DRUGS (3)
  1. DUPILUMAB [Suspect]
     Active Substance: DUPILUMAB
     Indication: NASAL POLYPS
  2. BUDESONIDE. [Concomitant]
     Active Substance: BUDESONIDE
     Indication: NASAL POLYPS
  3. QVAR [Concomitant]
     Active Substance: BECLOMETHASONE DIPROPIONATE
     Indication: ASTHMA
     Dosage: UNK

REACTIONS (3)
  - Nasal congestion [Unknown]
  - Upper-airway cough syndrome [Unknown]
  - Anosmia [Unknown]
